FAERS Safety Report 6644764-5 (Version None)
Quarter: 2010Q1

REPORT INFORMATION
  Report Type: 
  Country: None (occurrence: None)
  Receive Date: 20100308
  Receipt Date: 20100228
  Transmission Date: 20100710
  Serious: Yes (Hospitalization)
  Sender: FDA-Public Use
  Company Number: 2010022195

PATIENT
  Age: 7 Year
  Sex: Male

DRUGS (2)
  1. VIVAGLOBIN [Suspect]
     Indication: HYPOGAMMAGLOBULINAEMIA
     Dosage: (WEEKLY 100 MG/KG SUBCUTANEOUS) ; (100 MG/KG EVERY 2 WEEKS SUBCUTANEOUS)
     Route: 058
     Dates: start: 20080101, end: 20080601
  2. VIVAGLOBIN [Suspect]
     Indication: HYPOGAMMAGLOBULINAEMIA
     Dosage: (WEEKLY 100 MG/KG SUBCUTANEOUS) ; (100 MG/KG EVERY 2 WEEKS SUBCUTANEOUS)
     Route: 058
     Dates: start: 20080601

REACTIONS (6)
  - EPISTAXIS [None]
  - HAEMOGLOBIN DECREASED [None]
  - IDIOPATHIC THROMBOCYTOPENIC PURPURA [None]
  - INJURY [None]
  - PETECHIAE [None]
  - TELANGIECTASIA [None]
